FAERS Safety Report 10773911 (Version 1)
Quarter: 2015Q1

REPORT INFORMATION
  Report Type: Spontaneous
  Country: GB (occurrence: GB)
  Receive Date: 20150208
  Receipt Date: 20150208
  Transmission Date: 20150721
  Serious: Yes (Hospitalization)
  Sender: FDA-Public Use
  Company Number: GB-MYLANLABS-2015M1003421

PATIENT

DRUGS (1)
  1. ANASTROZOLE. [Suspect]
     Active Substance: ANASTROZOLE
     Indication: BONE MARROW INFILTRATION
     Dosage: 1 MG, QD
     Route: 065

REACTIONS (1)
  - Non-alcoholic steatohepatitis [Recovering/Resolving]
